FAERS Safety Report 8421825-1 (Version None)
Quarter: 2012Q2

REPORT INFORMATION
  Report Type: 
  Country: None (occurrence: None)
  Receive Date: 20120605
  Receipt Date: 20120605
  Transmission Date: 20120825
  Serious: No
  Sender: FDA-Public Use
  Company Number: None

PATIENT
  Sex: Female
  Weight: 74.8435 kg

DRUGS (3)
  1. LEVOFLOXACIN [Suspect]
     Indication: PNEUMONIA
     Dosage: 750 MG 1 A DAY; 500 MG 1 A DAY
     Dates: start: 20120410, end: 20120415
  2. LEVOFLOXACIN [Suspect]
     Indication: PNEUMONIA
     Dosage: 750 MG 1 A DAY; 500 MG 1 A DAY
     Dates: start: 20120428, end: 20120504
  3. LEVOFLOXACIN [Suspect]

REACTIONS (3)
  - HEART RATE IRREGULAR [None]
  - ARTHRALGIA [None]
  - MYALGIA [None]
